FAERS Safety Report 25418969 (Version 1)
Quarter: 2025Q2

REPORT INFORMATION
  Report Type: Report from Study
  Country: BR (occurrence: BR)
  Receive Date: 20250610
  Receipt Date: 20250610
  Transmission Date: 20250717
  Serious: Yes (Other)
  Sender: NOVARTIS
  Company Number: BR-002147023-NVSC2024BR168768

PATIENT
  Age: 41 Year
  Sex: Female
  Weight: 81 kg

DRUGS (3)
  1. KESIMPTA [Suspect]
     Active Substance: OFATUMUMAB
     Indication: Multiple sclerosis
     Dosage: 20 MG, QMO (INJECTION)
     Route: 058
     Dates: start: 2022
  2. KESIMPTA [Suspect]
     Active Substance: OFATUMUMAB
     Route: 065
     Dates: start: 20231005, end: 20240718
  3. KESIMPTA [Suspect]
     Active Substance: OFATUMUMAB
     Route: 065
     Dates: start: 20250424

REACTIONS (18)
  - Pneumonia [Recovering/Resolving]
  - Muscular weakness [Not Recovered/Not Resolved]
  - Influenza like illness [Unknown]
  - Nasopharyngitis [Unknown]
  - Cough [Not Recovered/Not Resolved]
  - Sinusitis [Unknown]
  - Vomiting [Unknown]
  - Dyspnoea [Recovering/Resolving]
  - Nausea [Unknown]
  - Increased need for sleep [Unknown]
  - Gait disturbance [Unknown]
  - Asthenia [Unknown]
  - Discharge [Unknown]
  - Fatigue [Recovered/Resolved]
  - Depressed mood [Unknown]
  - Erythema [Unknown]
  - Feeling hot [Unknown]
  - Inappropriate schedule of product administration [Unknown]

NARRATIVE: CASE EVENT DATE: 20231005
